FAERS Safety Report 24222308 (Version 4)
Quarter: 2024Q4

REPORT INFORMATION
  Report Type: Spontaneous
  Country: US (occurrence: US)
  Receive Date: 20240819
  Receipt Date: 20241025
  Transmission Date: 20250114
  Serious: Yes (Life-Threatening, Other)
  Sender: BAYER HEALTHCARE PHARMACEUTICALS INC.
  Company Number: US-BAYER-2024A115796

PATIENT
  Age: 41 Year
  Sex: Female

DRUGS (4)
  1. MIRENA [Suspect]
     Active Substance: LEVONORGESTREL
     Indication: Abnormal uterine bleeding
     Dosage: 20?G/DAY
     Route: 015
     Dates: start: 20220315, end: 20221118
  2. MIRENA [Suspect]
     Active Substance: LEVONORGESTREL
     Indication: Uterine leiomyoma
  3. TORADOL [Concomitant]
     Active Substance: KETOROLAC TROMETHAMINE
  4. PROVERA [Concomitant]
     Active Substance: MEDROXYPROGESTERONE ACETATE
     Dosage: 20 MG, TID
     Route: 048

REACTIONS (4)
  - Leiomyosarcoma metastatic [Not Recovered/Not Resolved]
  - Genital haemorrhage [Recovering/Resolving]
  - Off label use [None]
  - Device use issue [None]

NARRATIVE: CASE EVENT DATE: 20220315
